FAERS Safety Report 20226858 (Version 1)
Quarter: 2021Q4

REPORT INFORMATION
  Report Type: Spontaneous
  Country: ES (occurrence: ES)
  Receive Date: 20211224
  Receipt Date: 20211224
  Transmission Date: 20220303
  Serious: Yes (Hospitalization, Other)
  Sender: FDA-Public Use
  Company Number: ES-GLAXOSMITHKLINE-ES2021GSK254526

PATIENT
  Age: 50 Year
  Sex: Female

DRUGS (2)
  1. VALACYCLOVIR HYDROCHLORIDE [Suspect]
     Active Substance: VALACYCLOVIR HYDROCHLORIDE
     Indication: Varicella
     Dosage: UNK
  2. IBUPROFEN [Concomitant]
     Active Substance: IBUPROFEN
     Indication: Varicella
     Dosage: UNK

REACTIONS (8)
  - Acute generalised exanthematous pustulosis [Unknown]
  - Pyrexia [Unknown]
  - Rash pruritic [Unknown]
  - Rash erythematous [Unknown]
  - Skin lesion inflammation [Unknown]
  - Blister [Unknown]
  - Pustule [Unknown]
  - Drug hypersensitivity [Unknown]
